FAERS Safety Report 19267995 (Version 1)
Quarter: 2021Q2

REPORT INFORMATION
  Report Type: Spontaneous
  Country: FR (occurrence: FR)
  Receive Date: 20210517
  Receipt Date: 20210517
  Transmission Date: 20210717
  Serious: Yes (Hospitalization)
  Sender: FDA-Public Use
  Company Number: FR-SA-2021SA161967

PATIENT
  Age: 57 Year
  Sex: Female
  Weight: 135 kg

DRUGS (4)
  1. SANDOSTATINE [Suspect]
     Active Substance: OCTREOTIDE ACETATE
     Indication: PERITONITIS
     Dosage: 300 UG, QD
     Route: 042
     Dates: start: 20210319, end: 20210324
  2. LOVENOX [Suspect]
     Active Substance: ENOXAPARIN SODIUM
     Indication: PERITONITIS
     Dosage: 4000 IU, QD
     Route: 059
     Dates: start: 20210317, end: 20210324
  3. METRONIDAZOLE. [Suspect]
     Active Substance: METRONIDAZOLE
     Indication: PERITONITIS
     Dosage: 1.5 G, QD (500MG 3X/J)
     Route: 042
     Dates: start: 20210320, end: 20210324
  4. CEFEPIME HYDROCHLORIDE. [Suspect]
     Active Substance: CEFEPIME HYDROCHLORIDE
     Indication: PERITONITIS
     Dosage: 6 G, QD (2G 3X/J)
     Route: 042
     Dates: start: 20210320, end: 20210324

REACTIONS (2)
  - Rash maculo-papular [Recovered/Resolved]
  - Product use in unapproved indication [Unknown]

NARRATIVE: CASE EVENT DATE: 20210324
